FAERS Safety Report 17203158 (Version 1)
Quarter: 2019Q4

REPORT INFORMATION
  Report Type: Spontaneous
  Country: CA (occurrence: CA)
  Receive Date: 20191226
  Receipt Date: 20191226
  Transmission Date: 20200122
  Serious: Yes (Hospitalization, Disabling, Other)
  Sender: FDA-Public Use
  Company Number: CA-TEVA-2019-CA-1156401

PATIENT
  Age: 71 Year
  Sex: Female

DRUGS (11)
  1. ENDOCET [Concomitant]
     Active Substance: ACETAMINOPHEN\OXYCODONE HYDROCHLORIDE
  2. ATIVAN [Concomitant]
     Active Substance: LORAZEPAM
     Dosage: 3 MILLIGRAM DAILY;
     Route: 058
  3. GLICLAZIDE [Concomitant]
     Active Substance: GLICLAZIDE
     Dosage: 320 MILLIGRAM DAILY;
     Route: 048
  4. LYRICA [Suspect]
     Active Substance: PREGABALIN
     Indication: PRODUCT USED FOR UNKNOWN INDICATION
     Dosage: 150 MILLIGRAM DAILY;
     Route: 065
  5. METFORMIN [Concomitant]
     Active Substance: METFORMIN HYDROCHLORIDE
     Dosage: 1000 MILLIGRAM DAILY;
     Route: 048
  6. ASACOL [Concomitant]
     Active Substance: MESALAMINE
     Dosage: 1600 MILLIGRAM DAILY;
  7. ATENOLOL. [Concomitant]
     Active Substance: ATENOLOL
     Dosage: 75 MILLIGRAM DAILY;
  8. DICETEL [Concomitant]
     Active Substance: PINAVERIUM BROMIDE
     Dosage: 300 MILLIGRAM DAILY;
     Route: 048
  9. HYDROXYZINE [Concomitant]
     Active Substance: HYDROXYZINE HYDROCHLORIDE
  10. LACTOBACILLUS PLANTARUM [Concomitant]
     Active Substance: LACTOBACILLUS PLANTARUM
     Dosage: 1 DOSAGE FORMS DAILY;
     Route: 048
  11. PREGABALIN. [Suspect]
     Active Substance: PREGABALIN
     Indication: PRODUCT USED FOR UNKNOWN INDICATION
     Route: 048

REACTIONS (2)
  - Pharyngeal oedema [Recovered/Resolved]
  - Angioedema [Recovered/Resolved]
